FAERS Safety Report 13842071 (Version 2)
Quarter: 2017Q3

REPORT INFORMATION
  Report Type: Report from Study
  Country: GB (occurrence: GB)
  Receive Date: 20170807
  Receipt Date: 20170901
  Transmission Date: 20171127
  Serious: Yes (Hospitalization)
  Sender: FDA-Public Use
  Company Number: GB-ALLERGAN-1731434US

PATIENT
  Sex: Male

DRUGS (1)
  1. ACAMPROSATE CALCIUM UNK [Suspect]
     Active Substance: ACAMPROSATE CALCIUM
     Indication: ALCOHOLISM
     Dosage: UNK
     Route: 048
     Dates: start: 20170522

REACTIONS (1)
  - Plantar fasciitis [Unknown]

NARRATIVE: CASE EVENT DATE: 20170614
